FAERS Safety Report 5250154-2 (Version None)
Quarter: 2007Q1

REPORT INFORMATION
  Report Type: 
  Country: None (occurrence: None)
  Receive Date: 20070228
  Receipt Date: 20060301
  Transmission Date: 20070707
  Serious: Yes (Other)
  Sender: FDA-Public Use
  Company Number: US-GLAXOSMITHKLINE-A0593733A

PATIENT
  Age: 40 Year
  Sex: Female

DRUGS (8)
  1. LAMICTAL [Suspect]
     Indication: BIPOLAR II DISORDER
     Route: 048
     Dates: start: 20051229, end: 20060208
  2. ALBUTEROL [Concomitant]
  3. AXERT [Concomitant]
  4. EFFEXOR XR [Concomitant]
  5. WELLBUTRIN SR [Concomitant]
  6. SONATA [Concomitant]
  7. VICODIN [Concomitant]
  8. IMITREX [Concomitant]

REACTIONS (3)
  - ANAEMIA [None]
  - HAEMATOCRIT DECREASED [None]
  - HAEMOGLOBIN DECREASED [None]
